FAERS Safety Report 6933044-6 (Version None)
Quarter: 2010Q3

REPORT INFORMATION
  Report Type: 
  Country: None (occurrence: None)
  Receive Date: 20100818
  Receipt Date: 20100818
  Transmission Date: 20110219
  Serious: Yes (Hospitalization)
  Sender: FDA-Public Use
  Company Number: None

PATIENT
  Age: 64 Year
  Sex: Male
  Weight: 92 kg

DRUGS (1)
  1. LENALIDOMIDE [Suspect]
     Indication: MULTIPLE MYELOMA
     Dosage: 25 MG EVERY DAY PO
     Route: 048
     Dates: start: 20100625, end: 20100810

REACTIONS (3)
  - NEPHROLITHIASIS [None]
  - PANCYTOPENIA [None]
  - RENAL FAILURE ACUTE [None]
